FAERS Safety Report 16240822 (Version 1)
Quarter: 2019Q2

REPORT INFORMATION
  Report Type: Spontaneous
  Country: DE (occurrence: DE)
  Receive Date: 20190425
  Receipt Date: 20190425
  Transmission Date: 20190711
  Serious: Yes (Other)
  Sender: FDA-Public Use
  Company Number: PHHY2019DE092946

PATIENT
  Age: 47 Year
  Sex: Male

DRUGS (9)
  1. PIPERACILLIN AND TAZOBACTAM [Suspect]
     Active Substance: PIPERACILLIN SODIUM\TAZOBACTAM SODIUM
     Indication: PNEUMONIA
     Route: 065
  2. MEROPENEM. [Suspect]
     Active Substance: MEROPENEM
     Indication: PNEUMONIA
     Dosage: UNK
     Route: 065
  3. AMPHOTERICIN B, LIPOSOME [Suspect]
     Active Substance: AMPHOTERICIN B
     Indication: PNEUMONIA
     Dosage: UNK
     Route: 065
  4. ACICLOVIR [Suspect]
     Active Substance: ACYCLOVIR
     Indication: PNEUMONIA
     Route: 065
  5. ELTROMBOPAG [Suspect]
     Active Substance: ELTROMBOPAG
     Indication: APLASTIC ANAEMIA
     Route: 065
  6. CLARITHROMYCIN. [Suspect]
     Active Substance: CLARITHROMYCIN
     Indication: PNEUMONIA
     Route: 065
  7. MOXIFLOXACIN. [Suspect]
     Active Substance: MOXIFLOXACIN
     Indication: PNEUMONIA
     Route: 065
  8. VORICONAZOLE. [Suspect]
     Active Substance: VORICONAZOLE
     Indication: PNEUMONIA
     Route: 065
  9. CEFTAZIDIME. [Suspect]
     Active Substance: CEFTAZIDIME
     Indication: PNEUMONIA
     Route: 065

REACTIONS (4)
  - Pneumonia [Recovered/Resolved]
  - Febrile neutropenia [Recovered/Resolved]
  - Drug ineffective [Unknown]
  - Product use in unapproved indication [Unknown]
